FAERS Safety Report 15595827 (Version 1)
Quarter: 2018Q4

REPORT INFORMATION
  Report Type: Spontaneous
  Country: AU (occurrence: AU)
  Receive Date: 20181107
  Receipt Date: 20181107
  Transmission Date: 20190205
  Serious: Yes (Other)
  Sender: FDA-Public Use
  Company Number: AU-TEVA-2018-AU-971861

PATIENT
  Age: 63 Year
  Sex: Female

DRUGS (2)
  1. RITUXIMAB. [Suspect]
     Active Substance: RITUXIMAB
     Indication: B-CELL LYMPHOMA
     Dosage: UNK UNK, CYCLIC (6 CYCLES)
     Route: 065
     Dates: end: 201701
  2. BENDAMUSTINE HYDROCHLORIDE. [Suspect]
     Active Substance: BENDAMUSTINE HYDROCHLORIDE
     Indication: B-CELL LYMPHOMA
     Dosage: UNK, CYCLIC (6 CYCLES)
     Route: 042
     Dates: end: 201701

REACTIONS (3)
  - Blindness unilateral [Not Recovered/Not Resolved]
  - Diarrhoea [Recovered/Resolved]
  - Cytomegalovirus chorioretinitis [Unknown]

NARRATIVE: CASE EVENT DATE: 201705
